FAERS Safety Report 8072822-X (Version None)
Quarter: 2012Q1

REPORT INFORMATION
  Report Type: 
  Country: None (occurrence: None)
  Receive Date: 20120123
  Receipt Date: 20120123
  Transmission Date: 20120608
  Serious: Yes (Hospitalization)
  Sender: FDA-Public Use
  Company Number: None

PATIENT
  Sex: Male
  Weight: 74.5 kg

DRUGS (1)
  1. CALCITRIOL [Suspect]
     Indication: HYPOPARATHYROIDISM
     Dosage: CALCITRIOL0.25 MCG (0.5 MCG - .25 MCG) 3 X/DAY ORAL
     Route: 048

REACTIONS (2)
  - MENTAL STATUS CHANGES [None]
  - HYPERCALCAEMIA [None]
